FAERS Safety Report 10189681 (Version 1)
Quarter: 2014Q2

REPORT INFORMATION
  Report Type: Spontaneous
  Country: US (occurrence: US)
  Receive Date: 20140522
  Receipt Date: 20140522
  Transmission Date: 20141212
  Serious: Yes (Other)
  Sender: FDA-Public Use
  Company Number: US-SANOFI-AVENTIS-2013SA091583

PATIENT
  Age: 61 Year
  Sex: Male
  Weight: 97 kg

DRUGS (8)
  1. LANTUS SOLOSTAR [Suspect]
     Indication: TYPE 2 DIABETES MELLITUS
     Dosage: START DATE: FROM 2 YEARS DOSE:54 UNIT(S)
     Route: 051
     Dates: start: 20110215
  2. SOLOSTAR [Concomitant]
     Indication: TYPE 2 DIABETES MELLITUS
     Dosage: START DATE: FROM 2 YEARS
     Dates: start: 20110215
  3. DIVALPROEX SODIUM [Concomitant]
     Indication: BIPOLAR DISORDER
     Route: 065
  4. RISPERIDONE [Concomitant]
     Route: 065
  5. LORAZEPAM [Concomitant]
     Route: 065
  6. PRAVASTATIN [Concomitant]
     Dosage: INDICATION: LEVEL IN BLOOD HIGH
     Route: 065
  7. LEVOTHYROXINE [Concomitant]
     Dosage: INDICATION: LEVEL IN BLOOD LOW
     Route: 065
  8. LISINOPRIL [Concomitant]
     Indication: BLOOD PRESSURE

REACTIONS (2)
  - Cataract [Not Recovered/Not Resolved]
  - Visual acuity reduced [Not Recovered/Not Resolved]
